FAERS Safety Report 9500042 (Version 1)
Quarter: 2013Q3

REPORT INFORMATION
  Report Type: Spontaneous
  Country: US (occurrence: US)
  Receive Date: 20130905
  Receipt Date: 20130905
  Transmission Date: 20140515
  Serious: No
  Sender: FDA-Public Use
  Company Number: US-BAYER-2013-106883

PATIENT
  Age: 24 Year
  Sex: Male

DRUGS (1)
  1. CIPRO 5 % ORAL SUSPENSION [Suspect]
     Dosage: 2 TSPS (500 MG) BID VIA G-TUBE

REACTIONS (1)
  - Wrong technique in drug usage process [None]
